FAERS Safety Report 7125009-9 (Version None)
Quarter: 2010Q4

REPORT INFORMATION
  Report Type: 
  Country: None (occurrence: None)
  Receive Date: 20101123
  Receipt Date: 20101123
  Transmission Date: 20110411
  Serious: Yes (Hospitalization)
  Sender: FDA-Public Use
  Company Number: None

PATIENT
  Age: 72 Year
  Sex: Male
  Weight: 80.5 kg

DRUGS (13)
  1. DECITABINE - 0.2MG / KG SUB-Q INJECTION 3X PER WEEK [Suspect]
     Indication: MYELODYSPLASTIC SYNDROME
     Dosage: DECITABINE .2MG/KG SUB-Q
  2. ACYCLOVIR SODIUM [Concomitant]
  3. NEXIUM [Concomitant]
  4. TAMSULOSIN [Concomitant]
  5. CIPRO [Concomitant]
  6. PHENEZOPYRIDINE [Concomitant]
  7. AMICAR [Concomitant]
  8. OXYCODONE HCL [Concomitant]
  9. NEXIUM [Concomitant]
  10. PROTEGRA [Concomitant]
  11. DYPHENHYDRAMINE [Concomitant]
  12. AVODART [Concomitant]
  13. COMPAZINE [Concomitant]

REACTIONS (6)
  - ABDOMINAL PAIN [None]
  - ATELECTASIS [None]
  - DYSPNOEA [None]
  - LIVER FUNCTION TEST ABNORMAL [None]
  - NEUTROPHIL COUNT DECREASED [None]
  - PLEURAL EFFUSION [None]
